FAERS Safety Report 4686884-0 (Version None)
Quarter: 2005Q2

REPORT INFORMATION
  Report Type: 
  Country: None (occurrence: None)
  Receive Date: 20050609
  Receipt Date: 20050217
  Transmission Date: 20051028
  Serious: Yes (Hospitalization)
  Sender: FDA-Public Use
  Company Number: US-MERCK-0502USA02356

PATIENT
  Age: 42 Year
  Sex: Female
  Weight: 79 kg

DRUGS (7)
  1. VIOXX [Suspect]
     Indication: ARTHRALGIA
     Route: 048
     Dates: start: 20020610, end: 20030204
  2. VIOXX [Suspect]
     Route: 048
     Dates: start: 20020610, end: 20030204
  3. VIOXX [Suspect]
     Indication: SHOULDER PAIN
     Route: 048
     Dates: start: 20020610, end: 20030204
  4. VIOXX [Suspect]
     Route: 048
     Dates: start: 20020610, end: 20030204
  5. TYLENOL (CAPLET) [Concomitant]
     Route: 065
  6. TYLENOL SINUS [Concomitant]
     Route: 065
  7. IBUPROFEN [Concomitant]
     Route: 065

REACTIONS (11)
  - ACUTE MYOCARDIAL INFARCTION [None]
  - CORONARY ARTERY DISEASE [None]
  - CORONARY ARTERY OCCLUSION [None]
  - COUGH [None]
  - DEPRESSION [None]
  - FEAR [None]
  - HYPERAEMIA [None]
  - MITRAL VALVE INCOMPETENCE [None]
  - PNEUMOTHORAX [None]
  - TRICUSPID VALVE INCOMPETENCE [None]
  - VENTRICULAR DYSFUNCTION [None]
